FAERS Safety Report 12193879 (Version 5)
Quarter: 2019Q4

REPORT INFORMATION
  Report Type: Spontaneous
  Country: CA (occurrence: CA)
  Receive Date: 20160321
  Receipt Date: 20191220
  Transmission Date: 20200122
  Serious: Yes (Hospitalization, Other)
  Sender: FDA-Public Use
  Company Number: CA-009507513-1603CAN008899

PATIENT
  Age: 75 Year
  Sex: Female

DRUGS (1)
  1. SINGULAIR [Suspect]
     Active Substance: MONTELUKAST SODIUM
     Indication: ASTHMA
     Dosage: 1 TABLET, DAILY BEFORE BED
     Route: 048
     Dates: start: 200903

REACTIONS (8)
  - Pyrexia [Unknown]
  - Dysphagia [Recovered/Resolved]
  - Chills [Unknown]
  - Influenza [Unknown]
  - Dementia Alzheimer^s type [Unknown]
  - Oropharyngeal pain [Unknown]
  - Diarrhoea [Unknown]
  - Product dose omission [Unknown]

NARRATIVE: CASE EVENT DATE: 201603
